FAERS Safety Report 5500147-2 (Version None)
Quarter: 2007Q4

REPORT INFORMATION
  Report Type: 
  Country: None (occurrence: None)
  Receive Date: 20071025
  Receipt Date: 20071010
  Transmission Date: 20080405
  Serious: Yes (Death, Life-Threatening, Other)
  Sender: FDA-Public Use
  Company Number: 2007US001660

PATIENT
  Age: 24 Year
  Sex: Female

DRUGS (7)
  1. AMBISOME [Suspect]
     Indication: FUNGAL INFECTION
     Dosage: 100 MG
     Dates: start: 20070507, end: 20070514
  2. VANCOMYCIN HYDROCHLORIDE [Suspect]
     Indication: CELLULITIS
     Dosage: 2 G
     Dates: start: 20070507, end: 20070513
  3. PAZUCROSS (PAZUFLOXACIN) [Concomitant]
  4. NEUPOGEN [Concomitant]
  5. LASIX [Concomitant]
  6. IDAMYCIN [Concomitant]
  7. CYTARABINE [Concomitant]

REACTIONS (12)
  - ACUTE MYELOID LEUKAEMIA [None]
  - BLOOD BILIRUBIN INCREASED [None]
  - BLOOD POTASSIUM DECREASED [None]
  - CONDITION AGGRAVATED [None]
  - HAEMOGLOBIN DECREASED [None]
  - HEPATIC FUNCTION ABNORMAL [None]
  - JAUNDICE [None]
  - PNEUMONITIS [None]
  - RENAL IMPAIRMENT [None]
  - SEPSIS [None]
  - URINE OUTPUT DECREASED [None]
  - WHITE BLOOD CELL COUNT DECREASED [None]
